FAERS Safety Report 25802308 (Version 1)
Quarter: 2025Q3

REPORT INFORMATION
  Report Type: Report from Study
  Country: SY (occurrence: SY)
  Receive Date: 20250915
  Receipt Date: 20250915
  Transmission Date: 20251021
  Serious: Yes (Other)
  Sender: ROCHE
  Company Number: SY-ROCHE-10000382272

PATIENT

DRUGS (4)
  1. TRASTUZUMAB [Suspect]
     Active Substance: TRASTUZUMAB
     Indication: HER2 positive breast cancer
     Route: 065
  2. TRASTUZUMAB [Suspect]
     Active Substance: TRASTUZUMAB
     Route: 065
  3. PERTUZUMAB [Suspect]
     Active Substance: PERTUZUMAB
     Indication: HER2 positive breast cancer
     Route: 065
  4. PERTUZUMAB [Suspect]
     Active Substance: PERTUZUMAB
     Route: 065

REACTIONS (7)
  - Ejection fraction decreased [Unknown]
  - Cardiomyopathy [Unknown]
  - Palpitations [Unknown]
  - Atrial fibrillation [Unknown]
  - Angina pectoris [Unknown]
  - Hypertension [Unknown]
  - Pulmonary hypertension [Unknown]
